FAERS Safety Report 7399966-X (Version None)
Quarter: 2011Q2

REPORT INFORMATION
  Report Type: 
  Country: None (occurrence: None)
  Receive Date: 20110407
  Receipt Date: 20110325
  Transmission Date: 20111010
  Serious: Yes (Hospitalization)
  Sender: FDA-Public Use
  Company Number: FR-JNJFOC-20110311318

PATIENT
  Age: 55 Year
  Sex: Male

DRUGS (2)
  1. DURAGESIC-100 [Suspect]
     Indication: PRODUCT USED FOR UNKNOWN INDICATION
     Route: 062
  2. VOLTAREN [Suspect]
     Indication: PRODUCT USED FOR UNKNOWN INDICATION
     Route: 048

REACTIONS (8)
  - MIOSIS [None]
  - APNOEA [None]
  - BRADYPNOEA [None]
  - RENAL FAILURE ACUTE [None]
  - OVERDOSE [None]
  - VOMITING [None]
  - RESPIRATORY TRACT CONGESTION [None]
  - COMA [None]
